FAERS Safety Report 7362926-9 (Version None)
Quarter: 2011Q1

REPORT INFORMATION
  Report Type: 
  Country: None (occurrence: None)
  Receive Date: 20110321
  Receipt Date: 20110314
  Transmission Date: 20110831
  Serious: No
  Sender: FDA-Public Use
  Company Number: US-BIOGENIDEC-2011BI009723

PATIENT
  Age: 26 Year
  Sex: Female

DRUGS (2)
  1. TYSABRI [Suspect]
     Indication: CROHN'S DISEASE
     Route: 042
     Dates: start: 20090416
  2. TYSABRI [Suspect]
     Route: 042
     Dates: start: 20080326, end: 20081017

REACTIONS (1)
  - DEVICE COMPONENT ISSUE [None]
